FAERS Safety Report 5769664-4 (Version None)
Quarter: 2008Q2

REPORT INFORMATION
  Report Type: 
  Country: None (occurrence: None)
  Receive Date: 20080612
  Receipt Date: 20080403
  Transmission Date: 20081010
  Serious: No
  Sender: FDA-Public Use
  Company Number: US-ABBOTT-08P-163-0445809-00

PATIENT
  Sex: Female
  Weight: 62.198 kg

DRUGS (20)
  1. HUMIRA [Suspect]
     Indication: CROHN'S DISEASE
     Dosage: 40 X 4
     Route: 058
     Dates: start: 20080402
  2. HUMIRA [Suspect]
     Dosage: 40 X 8
     Dates: start: 20080417
  3. PREDNISONE TAB [Concomitant]
     Indication: CROHN'S DISEASE
     Dosage: 20 MG DAILY
     Route: 048
     Dates: start: 20080201
  4. AZATHIOPRINE [Concomitant]
     Indication: CROHN'S DISEASE
     Dosage: 100 MG DAILY
     Route: 048
     Dates: start: 20071201
  5. BECLOMETHASONE DIPROPIONATE [Concomitant]
     Indication: ASTHMA
     Dosage: 2 PUFFS, 2 TIMES DAILY
     Dates: start: 20070101
  6. SALBUTAMOL SULFATE [Concomitant]
     Indication: ASTHMA
     Dosage: EVERY 4-6 HRS AS NEEDED
     Dates: start: 20020101
  7. LORATADINE [Concomitant]
     Indication: ASTHMA
     Dosage: 1, 24 HOUR DOSAGE PER DAY
     Route: 048
     Dates: start: 20020101
  8. LORATADINE [Concomitant]
     Indication: HYPERSENSITIVITY
  9. MOMETASONE FUROATE [Concomitant]
     Indication: ASTHMA
     Dosage: 2 PUFFS AS NEEDED
     Dates: start: 20020101
  10. MOMETASONE FUROATE [Concomitant]
     Indication: HYPERSENSITIVITY
  11. ACETAMINOPHEN W/ CODEINE [Concomitant]
     Indication: PAIN
     Route: 048
     Dates: start: 19930101
  12. OXYCODONE HCL [Concomitant]
     Indication: PAIN
     Route: 048
     Dates: start: 19930101
  13. M.V.I. [Concomitant]
     Indication: MEDICAL DIET
     Route: 048
     Dates: start: 19930101
  14. CALCIUM [Concomitant]
     Indication: MINERAL SUPPLEMENTATION
     Dosage: 1000 MG DAILY
     Route: 048
     Dates: start: 19930101
  15. HYOSCYAMINE SULFATE [Concomitant]
     Indication: ABDOMINAL PAIN UPPER
     Route: 048
  16. PHENERGAN [Concomitant]
     Indication: NAUSEA
     Dosage: 25 MG EVERY 4-6 HRS AS NEEDED
     Route: 048
     Dates: start: 19930101
  17. VALIUM [Concomitant]
     Indication: INSOMNIA
     Dosage: 5 MG AT NIGHT AS NEEDED
     Route: 048
     Dates: start: 19930101
  18. PREDNISONE TAB [Concomitant]
     Dosage: 20 MG DAILY AS NEEDED
     Route: 048
     Dates: start: 19730101
  19. PREDNISONE TAB [Concomitant]
     Indication: PYODERMA
  20. LANSOPRAZOLE [Concomitant]
     Indication: GASTROOESOPHAGEAL REFLUX DISEASE
     Dosage: 30 MG IN THE MORMING AS NEEDED
     Route: 048
     Dates: start: 20060101

REACTIONS (2)
  - INJECTION SITE PAIN [None]
  - MUSCULAR WEAKNESS [None]
